APPROVED DRUG PRODUCT: METROGEL-VAGINAL
Active Ingredient: METRONIDAZOLE
Strength: 0.75%
Dosage Form/Route: GEL;VAGINAL
Application: N020208 | Product #001
Applicant: BAUSCH HEALTH US LLC
Approved: Aug 17, 1992 | RLD: Yes | RS: No | Type: DISCN